FAERS Safety Report 10721064 (Version 4)
Quarter: 2015Q4

REPORT INFORMATION
  Report Type: Spontaneous
  Country: JP (occurrence: JP)
  Receive Date: 20150119
  Receipt Date: 20151209
  Transmission Date: 20160304
  Serious: Yes (Other)
  Sender: FDA-Public Use
  Company Number: JP-BRISTOL-MYERS SQUIBB COMPANY-20723805

PATIENT
  Age: 50 Year
  Sex: Male

DRUGS (34)
  1. ERBITUX [Suspect]
     Active Substance: CETUXIMAB
     Dosage: 250 MG, UNK
     Route: 041
     Dates: start: 20140514, end: 20140528
  2. ERBITUX [Suspect]
     Active Substance: CETUXIMAB
     Dosage: 250 MG, UNK
     Route: 041
     Dates: start: 20140917, end: 20141112
  3. ERBITUX [Suspect]
     Active Substance: CETUXIMAB
     Dosage: 250 MG, UNK
     Route: 041
     Dates: start: 20150422, end: 20150520
  4. ERBITUX [Suspect]
     Active Substance: CETUXIMAB
     Dosage: 250 MG, UNK
     Route: 041
     Dates: start: 20140702, end: 20140723
  5. ERBITUX [Suspect]
     Active Substance: CETUXIMAB
     Dosage: 250 MG, UNK
     Route: 041
     Dates: start: 20140827, end: 20140917
  6. ERBITUX [Suspect]
     Active Substance: CETUXIMAB
     Dosage: 250 MG, UNK
     Route: 041
     Dates: start: 20150325, end: 20150415
  7. PACLITAXEL. [Suspect]
     Active Substance: PACLITAXEL
     Dosage: 100 MG/M2, QWK
     Route: 041
     Dates: start: 20140326, end: 20140402
  8. CARBOPLATIN. [Suspect]
     Active Substance: CARBOPLATIN
     Dosage: 1 UNK, UNK
     Route: 041
     Dates: start: 20140416, end: 20140423
  9. ERBITUX [Suspect]
     Active Substance: CETUXIMAB
     Indication: SQUAMOUS CELL CARCINOMA OF HEAD AND NECK
     Dosage: 400 MG/M2, QWK
     Route: 041
     Dates: start: 20140115, end: 20140115
  10. ERBITUX [Suspect]
     Active Substance: CETUXIMAB
     Dosage: 250 MG, UNK
     Route: 041
     Dates: start: 20150223, end: 20150318
  11. ERBITUX [Suspect]
     Active Substance: CETUXIMAB
     Dosage: 250 MG, UNK
     Route: 041
     Dates: start: 20150527, end: 20150617
  12. ERBITUX [Suspect]
     Active Substance: CETUXIMAB
     Dosage: 250 MG, UNK
     Route: 041
     Dates: start: 20140205, end: 20140219
  13. ERBITUX [Suspect]
     Active Substance: CETUXIMAB
     Dosage: 250 MG, UNK
     Route: 041
     Dates: start: 20150121, end: 20150213
  14. ERBITUX [Suspect]
     Active Substance: CETUXIMAB
     Dosage: 250 MG, UNK
     Route: 041
     Dates: start: 20150819, end: 20150909
  15. PACLITAXEL. [Suspect]
     Active Substance: PACLITAXEL
     Dosage: 100 MG/M2, QWK
     Route: 041
     Dates: start: 20140205, end: 20140212
  16. PACLITAXEL. [Suspect]
     Active Substance: PACLITAXEL
     Dosage: 100 MG/M2, QWK
     Route: 041
     Dates: start: 20140305, end: 20140312
  17. GRANISETRON [Suspect]
     Active Substance: GRANISETRON
     Indication: PRODUCT USED FOR UNKNOWN INDICATION
     Route: 065
  18. ERBITUX [Suspect]
     Active Substance: CETUXIMAB
     Dosage: 250 MG, UNK
     Route: 041
     Dates: start: 20150624, end: 20150715
  19. PACLITAXEL. [Suspect]
     Active Substance: PACLITAXEL
     Dosage: 100 MG/L, QWK
     Route: 041
     Dates: start: 20140514, end: 20140521
  20. CARBOPLATIN. [Suspect]
     Active Substance: CARBOPLATIN
     Dosage: 1 UNK, UNK
     Route: 041
     Dates: start: 20140205, end: 20140212
  21. CARBOPLATIN. [Suspect]
     Active Substance: CARBOPLATIN
     Dosage: 1 UNK, UNK
     Route: 041
     Dates: start: 20140305, end: 20140312
  22. CARBOPLATIN. [Suspect]
     Active Substance: CARBOPLATIN
     Dosage: 1 UNK, UNK
     Route: 041
     Dates: start: 20140514, end: 20140521
  23. ERBITUX [Suspect]
     Active Substance: CETUXIMAB
     Dosage: 250 MG, UNK
     Route: 041
     Dates: start: 20140122, end: 20140129
  24. ERBITUX [Suspect]
     Active Substance: CETUXIMAB
     Dosage: 250 MG, UNK
     Route: 041
     Dates: start: 20140604, end: 20140625
  25. ERBITUX [Suspect]
     Active Substance: CETUXIMAB
     Dosage: 250 MG, UNK
     Route: 041
     Dates: start: 20140924, end: 20141015
  26. ERBITUX [Suspect]
     Active Substance: CETUXIMAB
     Dosage: 250 MG, UNK
     Route: 041
     Dates: start: 20150722, end: 20150812
  27. PACLITAXEL. [Suspect]
     Active Substance: PACLITAXEL
     Indication: SQUAMOUS CELL CARCINOMA OF HEAD AND NECK
     Dosage: 100 MG/M2, QWK
     Route: 041
     Dates: start: 20140115, end: 20140122
  28. ERBITUX [Suspect]
     Active Substance: CETUXIMAB
     Dosage: 250 MG, UNK
     Route: 041
     Dates: start: 20140326, end: 20140409
  29. ERBITUX [Suspect]
     Active Substance: CETUXIMAB
     Dosage: 250 MG, UNK
     Route: 041
     Dates: start: 20141217, end: 20150114
  30. PACLITAXEL. [Suspect]
     Active Substance: PACLITAXEL
     Dosage: 100 MG/M2, QWK
     Route: 041
     Dates: start: 20140416, end: 20140423
  31. ERBITUX [Suspect]
     Active Substance: CETUXIMAB
     Dosage: 250 MG, UNK
     Route: 041
     Dates: start: 20140730, end: 20140820
  32. ERBITUX [Suspect]
     Active Substance: CETUXIMAB
     Dosage: 250 MG, UNK
     Route: 041
     Dates: start: 20141119, end: 20141210
  33. CARBOPLATIN. [Suspect]
     Active Substance: CARBOPLATIN
     Indication: SQUAMOUS CELL CARCINOMA OF HEAD AND NECK
     Dosage: 1DF:2.5 AUC.INF
     Route: 041
     Dates: start: 20140115, end: 20140122
  34. CARBOPLATIN. [Suspect]
     Active Substance: CARBOPLATIN
     Dosage: 1 UNK, UNK
     Route: 041
     Dates: start: 20140326, end: 20140402

REACTIONS (16)
  - Pneumonia [Unknown]
  - Hypoalbuminaemia [Unknown]
  - Hypertrichosis [Unknown]
  - Dysgeusia [Unknown]
  - Haemoglobin decreased [Unknown]
  - Alopecia [Unknown]
  - Skin reaction [Unknown]
  - Neutrophil count decreased [Unknown]
  - Pneumothorax [Unknown]
  - White blood cell count decreased [Unknown]
  - Hyperkalaemia [Unknown]
  - Dry mouth [Unknown]
  - Blood bilirubin increased [Unknown]
  - Mucosal inflammation [Unknown]
  - Constipation [Unknown]
  - Dermatitis acneiform [Unknown]

NARRATIVE: CASE EVENT DATE: 20140115
